FAERS Safety Report 7382860-8 (Version None)
Quarter: 2011Q1

REPORT INFORMATION
  Report Type: 
  Country: None (occurrence: None)
  Receive Date: 20110316
  Receipt Date: 20110210
  Transmission Date: 20110831
  Serious: Yes (Other)
  Sender: FDA-Public Use
  Company Number: 2128643-2011-00006

PATIENT
  Age: 49 Year
  Sex: Male
  Weight: 90.7194 kg

DRUGS (3)
  1. ALCOHOL SWABS AND PADS (TRIAD -103530 + 103531) [Suspect]
     Indication: INJECTION
     Dosage: UNKNOWN
  2. COPAXONE INJECTIONS [Concomitant]
  3. ALCOHOL SWABS AND PADS (TRIAD -103530 + 103531) [Suspect]

REACTIONS (1)
  - INJECTION SITE INFECTION [None]
